FAERS Safety Report 5772265-5 (Version None)
Quarter: 2008Q2

REPORT INFORMATION
  Report Type: 
  Country: None (occurrence: None)
  Receive Date: 20080613
  Receipt Date: 20080602
  Transmission Date: 20081010
  Serious: Yes (Hospitalization)
  Sender: FDA-Public Use
  Company Number: PHHY2008IL09761

PATIENT

DRUGS (3)
  1. GLEEVEC [Suspect]
     Indication: GASTROINTESTINAL STROMAL TUMOUR
     Dosage: 200 MG, BID
     Route: 048
     Dates: start: 20080415
  2. FUROSEMIDE [Concomitant]
  3. ASPIRIN [Concomitant]

REACTIONS (8)
  - BURNING SENSATION [None]
  - DYSPNOEA [None]
  - HYPOTENSION [None]
  - MUSCLE SPASMS [None]
  - NERVOUSNESS [None]
  - PALLOR [None]
  - SENSATION OF PRESSURE [None]
  - SYNCOPE [None]
